FAERS Safety Report 4635516-6 (Version None)
Quarter: 2005Q2

REPORT INFORMATION
  Report Type: 
  Country: None (occurrence: None)
  Receive Date: 20050414
  Receipt Date: 20050412
  Transmission Date: 20051028
  Serious: Yes (Hospitalization)
  Sender: FDA-Public Use
  Company Number: DE-MERCK-0504DEU00079

PATIENT
  Age: 47 Year
  Sex: Female

DRUGS (1)
  1. MAXALT [Suspect]
     Indication: MIGRAINE
     Route: 048
     Dates: end: 20050409

REACTIONS (4)
  - DIZZINESS [None]
  - EXANTHEM [None]
  - PARAESTHESIA [None]
  - SWELLING FACE [None]
